FAERS Safety Report 9640110 (Version 1)
Quarter: 2013Q4

REPORT INFORMATION
  Report Type: Spontaneous
  Country: US (occurrence: None)
  Receive Date: 20131022
  Receipt Date: 20131022
  Transmission Date: 20140711
  Serious: Yes (Hospitalization)
  Sender: FDA-Public Use
  Company Number: None

PATIENT
  Age: 66 Year
  Sex: Male
  Weight: 84.8 kg

DRUGS (3)
  1. HYDROXYZINE [Suspect]
     Indication: ANXIETY
     Route: 048
     Dates: start: 20130906, end: 20131008
  2. QUETIAPINE [Suspect]
     Indication: BIPOLAR DISORDER
     Route: 048
     Dates: start: 20130906, end: 20131008
  3. QUETIAPINE [Suspect]
     Indication: MANIA
     Route: 048
     Dates: start: 20130906, end: 20131008

REACTIONS (5)
  - Dizziness [None]
  - Fall [None]
  - Urinary retention [None]
  - Treatment noncompliance [None]
  - Hypotension [None]
